FAERS Safety Report 7102517-8 (Version None)
Quarter: 2010Q4

REPORT INFORMATION
  Report Type: 
  Country: None (occurrence: None)
  Receive Date: 20101115
  Receipt Date: 20101110
  Transmission Date: 20110411
  Serious: Yes (Hospitalization)
  Sender: FDA-Public Use
  Company Number: FR-ROCHE-740351

PATIENT
  Sex: Female

DRUGS (5)
  1. KYTRIL [Suspect]
     Indication: CHEMOTHERAPY
     Dosage: FREQUENCY: ONCE
     Route: 042
     Dates: start: 20100819, end: 20100819
  2. TAXOL [Suspect]
     Indication: BREAST CANCER
     Dosage: FREQUENCY: ONCE
     Route: 042
     Dates: start: 20100819, end: 20100819
  3. RANITIDINE [Concomitant]
     Indication: CHEMOTHERAPY
     Dosage: FREQUENCY: ONCE, DRUG: RANITIDINE BASE
     Route: 042
     Dates: start: 20100819, end: 20100819
  4. POLARAMINE [Concomitant]
     Indication: CHEMOTHERAPY
     Dosage: FREQUENCY: ONCE
     Route: 042
     Dates: start: 20100819, end: 20100819
  5. DEXAMETHASONE [Concomitant]
     Indication: CHEMOTHERAPY
     Dosage: FREQUENCY: ONCE
     Route: 042
     Dates: start: 20100819, end: 20100819

REACTIONS (2)
  - ACUTE CORONARY SYNDROME [None]
  - CHEST PAIN [None]
